FAERS Safety Report 23099982 (Version 1)
Quarter: 2023Q4

REPORT INFORMATION
  Report Type: Spontaneous
  Country: US (occurrence: None)
  Receive Date: 20231023
  Receipt Date: 20231023
  Transmission Date: 20240109
  Serious: Yes (Disabling, Other)
  Sender: FDA-Public Use
  Company Number: None

PATIENT
  Age: 35 Year
  Sex: Female
  Weight: 51.75 kg

DRUGS (21)
  1. VENOFER [Suspect]
     Active Substance: IRON SUCROSE
     Indication: Iron deficiency
     Dates: start: 20230913, end: 20230928
  2. PRGESTERONE [Concomitant]
  3. TIROSINT [Concomitant]
     Active Substance: LEVOTHYROXINE SODIUM
  4. ALLEGRA [Concomitant]
     Active Substance: FEXOFENADINE HYDROCHLORIDE
  5. ZOFRAN [Concomitant]
     Active Substance: ONDANSETRON HYDROCHLORIDE
  6. ZOMIG [Concomitant]
     Active Substance: ZOLMITRIPTAN
  7. XANAX [Concomitant]
     Active Substance: ALPRAZOLAM
  8. DILTIAZEM [Concomitant]
     Active Substance: DILTIAZEM
  9. OXYCODONE [Concomitant]
     Active Substance: OXYCODONE
  10. SINGULAIR [Concomitant]
     Active Substance: MONTELUKAST SODIUM
  11. TRAZODONE [Concomitant]
     Active Substance: TRAZODONE HYDROCHLORIDE
  12. TIZANIDINE [Concomitant]
     Active Substance: TIZANIDINE
  13. XOPONEX [Concomitant]
  14. SYMBICORT [Concomitant]
     Active Substance: BUDESONIDE\FORMOTEROL FUMARATE DIHYDRATE
  15. PROTONIX [Concomitant]
     Active Substance: PANTOPRAZOLE SODIUM
  16. MEDICAL PATIENT CANNABIS [Concomitant]
  17. XOLAIR [Concomitant]
     Active Substance: OMALIZUMAB
  18. GAMMAGARD [Concomitant]
     Active Substance: HUMAN IMMUNOGLOBULIN G
  19. CROMOLYN [Concomitant]
     Active Substance: CROMOLYN
  20. PEPCID AC [Concomitant]
     Active Substance: FAMOTIDINE
  21. BENADRYL [Concomitant]
     Active Substance: DIPHENHYDRAMINE HYDROCHLORIDE

REACTIONS (13)
  - Infusion related reaction [None]
  - Throat tightness [None]
  - Pharyngeal swelling [None]
  - Hypersensitivity [None]
  - Lip swelling [None]
  - Mast cell activation syndrome [None]
  - Lip pruritus [None]
  - Pain [None]
  - Inflammation [None]
  - Anxiety [None]
  - Post-traumatic stress disorder [None]
  - Panic disorder [None]
  - Documented hypersensitivity to administered product [None]

NARRATIVE: CASE EVENT DATE: 20230928
